FAERS Safety Report 10390415 (Version 1)
Quarter: 2014Q3

REPORT INFORMATION
  Report Type: Spontaneous
  Country: US (occurrence: None)
  Receive Date: 20140814
  Receipt Date: 20140814
  Transmission Date: 20150326
  Serious: Yes (Other)
  Sender: FDA-Public Use
  Company Number: HA14-300-AE

PATIENT
  Age: 51 Year
  Sex: Female
  Weight: 47.63 kg

DRUGS (5)
  1. LEXAPRO (ESCITALOPRAM) [Concomitant]
  2. INTEGRA PLUS (FERROUS-FUMARATE, POLYSACCHARIDE IRON COMPLEX, FOLIC ACID, VITAMIN B COMPLEX, VITAMIN C, BIOTIN) [Concomitant]
  3. ADDERALL (AMPHETAMINE/DEXTROAMPHETAMINE) [Concomitant]
  4. XANAX [Concomitant]
     Active Substance: ALPRAZOLAM
  5. GABAPENTIN. [Suspect]
     Active Substance: GABAPENTIN
     Indication: NEURALGIA
     Dosage: 1 TAB
     Route: 048
     Dates: start: 201403

REACTIONS (8)
  - Decreased activity [None]
  - Movement disorder [None]
  - Bedridden [None]
  - Drug ineffective [None]
  - Convulsion [None]
  - Memory impairment [None]
  - Feeling abnormal [None]
  - Joint swelling [None]

NARRATIVE: CASE EVENT DATE: 201403
